FAERS Safety Report 22594036 (Version 1)
Quarter: 2023Q2

REPORT INFORMATION
  Report Type: Spontaneous
  Country: US (occurrence: None)
  Receive Date: 20230612
  Receipt Date: 20230612
  Transmission Date: 20230721
  Serious: Yes (Hospitalization)
  Sender: FDA-Public Use
  Company Number: None

PATIENT
  Age: 75 Year
  Sex: Male

DRUGS (1)
  1. ABIRATERONE [Suspect]
     Active Substance: ABIRATERONE
     Dosage: FREQUENCY : DAILY;?
     Route: 048

REACTIONS (6)
  - Blood pressure fluctuation [None]
  - Atrial fibrillation [None]
  - Hot flush [None]
  - Depression [None]
  - Hypotension [None]
  - Syncope [None]

NARRATIVE: CASE EVENT DATE: 20230612
